FAERS Safety Report 22218149 (Version 1)
Quarter: 2023Q2

REPORT INFORMATION
  Report Type: Other
  Country: FR (occurrence: FR)
  Receive Date: 20230417
  Receipt Date: 20230417
  Transmission Date: 20230722
  Serious: Yes (Hospitalization, Other)
  Sender: FDA-Public Use
  Company Number: None

PATIENT
  Age: 45 Year
  Sex: Female

DRUGS (2)
  1. DICLOFENAC [Suspect]
     Active Substance: DICLOFENAC
     Indication: Neuralgia
     Dosage: 150 MILLIGRAM, 50MG 3/J
     Route: 048
     Dates: start: 20230315, end: 20230317
  2. IBUPROFEN [Suspect]
     Active Substance: IBUPROFEN
     Indication: Neuralgia
     Dosage: 1200 MILLIGRAM, 400MG 3/J
     Route: 048
     Dates: start: 20230307, end: 20230314

REACTIONS (4)
  - Thrombosis [None]
  - Sinusitis [None]
  - Lung disorder [None]
  - Off label use [Unknown]

NARRATIVE: CASE EVENT DATE: 20230317
